FAERS Safety Report 25214422 (Version 2)
Quarter: 2025Q2

REPORT INFORMATION
  Report Type: Spontaneous
  Country: FR (occurrence: FR)
  Receive Date: 20250418
  Receipt Date: 20250508
  Transmission Date: 20250716
  Serious: Yes (Hospitalization)
  Sender: PFIZER
  Company Number: None

PATIENT
  Age: 73 Year
  Sex: Male
  Weight: 87 kg

DRUGS (20)
  1. PIPERACILLIN SODIUM\TAZOBACTAM SODIUM [Suspect]
     Active Substance: PIPERACILLIN SODIUM\TAZOBACTAM SODIUM
     Indication: Septic shock
     Dosage: 4 G, 3X/DAY
     Route: 042
     Dates: start: 20250318, end: 20250331
  2. PIPERACILLIN SODIUM\TAZOBACTAM SODIUM [Suspect]
     Active Substance: PIPERACILLIN SODIUM\TAZOBACTAM SODIUM
     Indication: Pneumonia
  3. PIPERACILLIN SODIUM\TAZOBACTAM SODIUM [Suspect]
     Active Substance: PIPERACILLIN SODIUM\TAZOBACTAM SODIUM
     Indication: Diabetic foot infection
  4. DAPTOMYCIN [Suspect]
     Active Substance: DAPTOMYCIN
     Indication: Septic shock
     Route: 042
     Dates: start: 20250318, end: 20250331
  5. DAPTOMYCIN [Suspect]
     Active Substance: DAPTOMYCIN
     Indication: Pneumonia
  6. DAPTOMYCIN [Suspect]
     Active Substance: DAPTOMYCIN
     Indication: Diabetic foot infection
  7. ERYTHROMYCIN ETHYLSUCCINATE [Concomitant]
     Active Substance: ERYTHROMYCIN ETHYLSUCCINATE
  8. NEOSTIGMINE BROMIDE [Concomitant]
     Active Substance: NEOSTIGMINE BROMIDE
  9. NOREPINEPHRINE BITARTRATE [Concomitant]
     Active Substance: NOREPINEPHRINE BITARTRATE
  10. TRESIBA [Concomitant]
     Active Substance: INSULIN DEGLUDEC
  11. HUMALOG [Concomitant]
     Active Substance: INSULIN LISPRO
  12. CALCIPARINE [Concomitant]
     Active Substance: HEPARIN CALCIUM
  13. CLOPIDOGREL BISULFATE [Concomitant]
     Active Substance: CLOPIDOGREL BISULFATE
  14. LAUROMACROGOL [Concomitant]
  15. MALEATO DE TRIMEBUTINA [Concomitant]
  16. LANSOPRAZOLE [Concomitant]
     Active Substance: LANSOPRAZOLE
  17. DOLIPRANE [Concomitant]
     Active Substance: ACETAMINOPHEN
  18. CYMBALTA [Concomitant]
     Active Substance: DULOXETINE HYDROCHLORIDE
  19. ROSUVASTATIN [Concomitant]
     Active Substance: ROSUVASTATIN
  20. LYRICA [Concomitant]
     Active Substance: PREGABALIN

REACTIONS (1)
  - Haemolytic anaemia [Not Recovered/Not Resolved]

NARRATIVE: CASE EVENT DATE: 20250324
